FAERS Safety Report 8917607 (Version 1)
Quarter: 2012Q4

REPORT INFORMATION
  Report Type: 
  Country: US (occurrence: US)
  Receive Date: 20121119
  Receipt Date: 20121119
  Transmission Date: 20130627
  Serious: No
  Sender: FDA-Public Use
  Company Number: US-009507513-1211USA003214

PATIENT
  Age: 64 Year
  Sex: Male
  Weight: 92.52 kg

DRUGS (8)
  1. VICTRELIS [Suspect]
     Dosage: take 4 capsules (800 mg) by mouth three times a day
     Route: 048
  2. RIBAVIRIN [Suspect]
  3. PEGASYS [Suspect]
  4. VITAMIN D (UNSPECIFIED) [Concomitant]
  5. ASPIRIN [Concomitant]
     Dosage: Low dose
  6. CITALOPRAM [Concomitant]
  7. NIFEDIPINE [Concomitant]
  8. ATENOLOL [Concomitant]

REACTIONS (1)
  - Decreased appetite [Unknown]
